FAERS Safety Report 17842478 (Version 2)
Quarter: 2020Q3

REPORT INFORMATION
  Report Type: Other
  Country: DE (occurrence: DE)
  Receive Date: 20200529
  Receipt Date: 20200715
  Transmission Date: 20201103
  Serious: No
  Sender: FDA-Public Use
  Company Number: DE-ROCHE-2608936

PATIENT
  Age: 59 Year
  Sex: Male
  Weight: 98 kg

DRUGS (14)
  1. AUGENTROPFEN [Concomitant]
     Dates: start: 2020
  2. SATIVEX [Concomitant]
     Active Substance: NABIXIMOLS
     Dates: start: 2015
  3. DEKRISTOL [Concomitant]
     Active Substance: CHOLECALCIFEROL
     Route: 048
     Dates: start: 201909
  4. DULOXETINE. [Concomitant]
     Active Substance: DULOXETINE
     Route: 048
     Dates: start: 201912
  5. OCRELIZUMAB. [Suspect]
     Active Substance: OCRELIZUMAB
     Route: 042
     Dates: start: 20200519
  6. AZATHIOPRINE. [Concomitant]
     Active Substance: AZATHIOPRINE
     Dates: start: 1996, end: 1996
  7. OCRELIZUMAB. [Suspect]
     Active Substance: OCRELIZUMAB
     Indication: MULTIPLE SCLEROSIS
     Route: 042
     Dates: start: 20191111, end: 20191126
  8. PREDNISOLUT [Concomitant]
     Active Substance: PREDNISOLONE
     Route: 042
     Dates: start: 20191111
  9. AERIUS [Concomitant]
     Route: 048
     Dates: start: 20191110
  10. TAMSULOSIN [Concomitant]
     Active Substance: TAMSULOSIN
     Route: 048
  11. FAMPYRA [Concomitant]
     Active Substance: DALFAMPRIDINE
  12. BIFITERAL [Concomitant]
     Active Substance: LACTULOSE
     Route: 048
  13. INTERFERON BETA?1A [Concomitant]
     Active Substance: INTERFERON BETA-1A
  14. METHYLPREDNISOLONE. [Concomitant]
     Active Substance: METHYLPREDNISOLONE
     Dates: start: 20140123, end: 20140125

REACTIONS (1)
  - Herpes simplex [Unknown]

NARRATIVE: CASE EVENT DATE: 202005
